FAERS Safety Report 24438996 (Version 1)
Quarter: 2024Q4

REPORT INFORMATION
  Report Type: Spontaneous
  Country: US (occurrence: None)
  Receive Date: 20241014
  Receipt Date: 20241014
  Transmission Date: 20250115
  Serious: No
  Sender: Public
  Company Number: None

PATIENT
  Age: 62 Year
  Sex: 0

DRUGS (2)
  1. COSENTYX [Suspect]
     Active Substance: SECUKINUMAB
     Indication: Psoriasis
     Dosage: OTHER FREQUENCY : ONCE MONTHLY;?
     Route: 058
     Dates: start: 20231030
  2. COSENTYX [Suspect]
     Active Substance: SECUKINUMAB
     Dates: start: 20231030

REACTIONS (2)
  - Rash [None]
  - Psoriasis [None]

NARRATIVE: CASE EVENT DATE: 20241013
